FAERS Safety Report 6258921-3 (Version None)
Quarter: 2009Q3

REPORT INFORMATION
  Report Type: 
  Country: None (occurrence: None)
  Receive Date: 20090702
  Receipt Date: 20090618
  Transmission Date: 20100115
  Serious: Yes (Hospitalization)
  Sender: FDA-Public Use
  Company Number: 2009AL004035

PATIENT
  Age: 72 Year
  Sex: Male

DRUGS (18)
  1. DIGOXIN [Suspect]
     Indication: CARDIAC DISORDER
     Dosage: 0.125MG, DAILY, PO
     Route: 048
  2. ALBUTEROL [Concomitant]
  3. ALLOPURINOL [Concomitant]
  4. FERROUS SULFATE TAB [Concomitant]
  5. CARVEDILOL [Concomitant]
  6. PREDNISONE TAB [Concomitant]
  7. LEVOTHYROXINE SODIUM [Concomitant]
  8. RANITIDINE [Concomitant]
  9. SIMVASTATIN [Concomitant]
  10. WARFARIN SODIUM [Concomitant]
  11. OXYCODONE [Concomitant]
  12. FUROSEMIDE [Concomitant]
  13. LOVASTATIN [Concomitant]
  14. METOPROLOL TARTRATE [Concomitant]
  15. MOXIFLOXACIN HCL [Concomitant]
  16. ALENDRONATE SODIUM [Concomitant]
  17. CAPSAICIN [Concomitant]
  18. AMMONIUM LACTATE [Concomitant]

REACTIONS (5)
  - CARDIAC FAILURE CONGESTIVE [None]
  - DISCOMFORT [None]
  - MUSCULAR WEAKNESS [None]
  - MUSCULOSKELETAL PAIN [None]
  - OSTEONECROSIS [None]
